FAERS Safety Report 8255721-X (Version None)
Quarter: 2012Q2

REPORT INFORMATION
  Report Type: 
  Country: None (occurrence: None)
  Receive Date: 20120403
  Receipt Date: 20120403
  Transmission Date: 20120825
  Serious: Yes (Other)
  Sender: FDA-Public Use
  Company Number: None

PATIENT
  Age: 9 Month
  Sex: Male
  Weight: 10.432 kg

DRUGS (1)
  1. PRILOSEC [Suspect]
     Indication: GASTROOESOPHAGEAL REFLUX DISEASE
     Dosage: 7.5 ML
     Route: 048
     Dates: start: 20110501, end: 20120401

REACTIONS (3)
  - FIBULA FRACTURE [None]
  - INJURY [None]
  - TIBIA FRACTURE [None]
